FAERS Safety Report 4376823-4 (Version None)
Quarter: 2004Q2

REPORT INFORMATION
  Report Type: 
  Country: None (occurrence: None)
  Receive Date: 20040609
  Receipt Date: 20040506
  Transmission Date: 20050107
  Serious: Yes (Hospitalization)
  Sender: FDA-Public Use
  Company Number: PHEH2004US03281

PATIENT
  Age: 65 Year
  Sex: Female
  Weight: 96.1 kg

DRUGS (3)
  1. GLEEVEC [Suspect]
     Indication: CHRONIC MYELOID LEUKAEMIA
     Dosage: 400 MG, QD, ORAL
     Route: 048
  2. COZAAR [Concomitant]
  3. LEVOXYL [Concomitant]

REACTIONS (1)
  - CEREBROVASCULAR ACCIDENT [None]
